FAERS Safety Report 8361419 (Version 2)
Quarter: 2013Q1

REPORT INFORMATION
  Report Type: Report from Study
  Country: US (occurrence: US)
  Receive Date: 20120128
  Receipt Date: 20130129
  Transmission Date: 20140127
  Serious: Yes (Other)
  Sender: FDA-Public Use
  Company Number: US-ABBOTT-11P-163-0845827-00

PATIENT
  Sex: Female

DRUGS (4)
  1. HUMIRA 40 MG/ 0.8 ML PRE-FILLED SYRINGE [Suspect]
     Indication: PSORIASIS
     Dates: start: 2007, end: 2011
  2. LOSARTAN/HCTZ [Concomitant]
     Indication: HYPERTENSION
     Dosage: 100/25: DAILY
  3. PREMARIN [Concomitant]
     Indication: HORMONE LEVEL ABNORMAL
  4. SPIRONALACTONE/HCTZ [Concomitant]
     Indication: FLUID RETENTION
     Dosage: 25/25MG: DAILY

REACTIONS (6)
  - Nephrolithiasis [Recovered/Resolved]
  - Fungal infection [Unknown]
  - Fungal infection [Unknown]
  - Psoriasis [Not Recovered/Not Resolved]
  - Urinary tract infection bacterial [Recovering/Resolving]
  - Vulvovaginal mycotic infection [Recovered/Resolved]
